FAERS Safety Report 5726090-1 (Version None)
Quarter: 2008Q2

REPORT INFORMATION
  Report Type: 
  Country: None (occurrence: None)
  Receive Date: 20080502
  Receipt Date: 20080422
  Transmission Date: 20081010
  Serious: Yes (Other)
  Sender: FDA-Public Use
  Company Number: HQWYE392722JUL05

PATIENT
  Sex: Female

DRUGS (7)
  1. PREMPRO [Suspect]
     Indication: HORMONE REPLACEMENT THERAPY
     Dosage: UNKNOWN
     Route: 048
     Dates: start: 19970909, end: 20030825
  2. ESTRADIOL [Suspect]
  3. PROGESTERONE [Suspect]
  4. ESTRACE [Suspect]
  5. TESTOSTERONE [Suspect]
  6. CONJUGATED ESTROGENS [Suspect]
  7. ESTRIOL [Suspect]

REACTIONS (1)
  - BREAST CANCER METASTATIC [None]
